FAERS Safety Report 16108635 (Version 1)
Quarter: 2019Q1

REPORT INFORMATION
  Report Type: Spontaneous
  Country: JP (occurrence: JP)
  Receive Date: 20190323
  Receipt Date: 20190323
  Transmission Date: 20190418
  Serious: Yes (Other)
  Sender: FDA-Public Use
  Company Number: JP-AMGEN-JPNSP2019046612

PATIENT
  Age: 8 Decade
  Sex: Female

DRUGS (3)
  1. PRALIA [Suspect]
     Active Substance: DENOSUMAB
     Indication: OSTEOPOROSIS
     Dosage: 60 MILLIGRAM, Q6MO
     Route: 058
  2. EDIROL [Concomitant]
     Active Substance: ELDECALCITOL
     Dosage: UNK UNK, QD
     Route: 048
  3. HAPSTAR [Concomitant]
     Dosage: UNK UNK, BID
     Route: 062

REACTIONS (1)
  - Osteonecrosis [Unknown]
